FAERS Safety Report 18645345 (Version 3)
Quarter: 2022Q2

REPORT INFORMATION
  Report Type: Spontaneous
  Country: US (occurrence: US)
  Receive Date: 20201221
  Receipt Date: 20220505
  Transmission Date: 20220721
  Serious: No
  Sender: FDA-Public Use
  Company Number: US-PFIZER INC-2019195303

PATIENT
  Age: 69 Year
  Sex: Female

DRUGS (3)
  1. XALATAN [Suspect]
     Active Substance: LATANOPROST
     Indication: Glaucoma
     Dosage: 2 DROP, 1X/DAY [OU (BOTH LEFT AND RIGHT EYE) (QHS (EVERY BED TIME)]
     Route: 031
  2. XALATAN [Suspect]
     Active Substance: LATANOPROST
     Indication: Cataract nuclear
  3. XALATAN [Suspect]
     Active Substance: LATANOPROST
     Indication: Intraocular pressure test abnormal

REACTIONS (2)
  - Feeling abnormal [Unknown]
  - Hypoacusis [Unknown]
